FAERS Safety Report 12162528 (Version 3)
Quarter: 2016Q1

REPORT INFORMATION
  Report Type: Other
  Country: IT (occurrence: IT)
  Receive Date: 20160309
  Receipt Date: 20160329
  Transmission Date: 20160526
  Serious: Yes (Other)
  Sender: FDA-Public Use
  Company Number: IT-MYLANLABS-2016M1009173

PATIENT

DRUGS (1)
  1. LEVOFLOXACIN 500 MG FILM-COATED TABLETS [Suspect]
     Active Substance: LEVOFLOXACIN
     Indication: THERMAL BURN
     Dosage: 500 MG, QD
     Route: 048
     Dates: start: 20160219

REACTIONS (3)
  - Oedema mouth [Recovering/Resolving]
  - Bronchospasm [Recovering/Resolving]
  - Erythema [Recovering/Resolving]

NARRATIVE: CASE EVENT DATE: 20160219
